FAERS Safety Report 8974367 (Version 2)
Quarter: 2015Q3

REPORT INFORMATION
  Report Type: Spontaneous
  Country: US (occurrence: US)
  Receive Date: 20121211
  Receipt Date: 20150819
  Transmission Date: 20151125
  Serious: Yes (Other)
  Sender: FDA-Public Use
  Company Number: 1473723

PATIENT
  Age: 75 Year
  Sex: Male

DRUGS (4)
  1. DEPO-MEDROL [Concomitant]
     Active Substance: METHYLPREDNISOLONE ACETATE
     Indication: ARTHRALGIA
     Dosage: ONCE
     Route: 014
     Dates: start: 20120830
  2. LIDOCAINE HYDROCHLORIDE. [Suspect]
     Active Substance: LIDOCAINE HYDROCHLORIDE
     Indication: OSTEOARTHRITIS
     Route: 014
     Dates: start: 20120826, end: 20120830
  3. DEPO-MEDROL [Concomitant]
     Active Substance: METHYLPREDNISOLONE ACETATE
     Indication: ARTHRALGIA
     Dosage: ONCE
     Route: 014
     Dates: start: 20120826
  4. LIDOCAINE HYDROCHLORIDE. [Suspect]
     Active Substance: LIDOCAINE HYDROCHLORIDE
     Indication: ARTHRALGIA
     Route: 014
     Dates: start: 20120826, end: 20120830

REACTIONS (1)
  - Arthritis infective [Recovering/Resolving]
